FAERS Safety Report 12656019 (Version 2)
Quarter: 2016Q3

REPORT INFORMATION
  Report Type: Spontaneous
  Country: US (occurrence: US)
  Receive Date: 20160816
  Receipt Date: 20160922
  Transmission Date: 20161109
  Serious: No
  Sender: FDA-Public Use
  Company Number: ALCN2016US005683

PATIENT
  Sex: Male

DRUGS (1)
  1. TIMOLOL. [Suspect]
     Active Substance: TIMOLOL
     Indication: PRODUCT USED FOR UNKNOWN INDICATION
     Dosage: 1 GTT, QD
     Route: 047
     Dates: start: 201606, end: 20160812

REACTIONS (5)
  - Headache [Recovering/Resolving]
  - Hypertension [Recovering/Resolving]
  - Hypoaesthesia [Recovering/Resolving]
  - Hypoaesthesia oral [Recovering/Resolving]
  - Fatigue [Recovering/Resolving]

NARRATIVE: CASE EVENT DATE: 201607
